FAERS Safety Report 8465593-6 (Version None)
Quarter: 2012Q2

REPORT INFORMATION
  Report Type: 
  Country: None (occurrence: None)
  Receive Date: 20120626
  Receipt Date: 20120619
  Transmission Date: 20120825
  Serious: Yes (Hospitalization)
  Sender: FDA-Public Use
  Company Number: US-BAYER-2012-062343

PATIENT
  Age: 41 Year
  Sex: Female
  Weight: 83.447 kg

DRUGS (12)
  1. YAZ [Suspect]
  2. DROSPIRENONE AND ETHINYL ESTRADIOL [Suspect]
  3. TEMAZEPAM [Concomitant]
     Dosage: 15 MG, UNK
     Route: 048
     Dates: start: 20090819
  4. PERCOCET [Concomitant]
     Dosage: 5-325MG
     Route: 048
     Dates: start: 20091006
  5. CITALOPRAM HYDROBROMIDE [Concomitant]
     Dosage: 40 MG, UNK
     Route: 048
     Dates: start: 20091015
  6. CELEXA [Concomitant]
     Dosage: UNK
     Route: 048
     Dates: start: 20091015
  7. MAXALT [Concomitant]
     Dosage: 10 MG, UNK
     Route: 048
     Dates: start: 20091006
  8. YASMIN [Suspect]
  9. NADOLOL [Concomitant]
     Dosage: 40 MG, UNK
     Route: 048
     Dates: start: 20091006
  10. FLUTICASONE PROPIONATE [Concomitant]
     Dosage: 50 ?G, UNK
     Route: 045
     Dates: start: 20091006
  11. TRAZODONE HCL [Concomitant]
     Dosage: 50 MG, UNK
     Route: 048
     Dates: start: 20091015
  12. CLONAZEPAM [Concomitant]
     Dosage: 1 MG, UNK
     Route: 048
     Dates: start: 20091015

REACTIONS (1)
  - PULMONARY EMBOLISM [None]
